FAERS Safety Report 7732101-4 (Version None)
Quarter: 2011Q3

REPORT INFORMATION
  Report Type: 
  Country: None (occurrence: None)
  Receive Date: 20110906
  Receipt Date: 20110809
  Transmission Date: 20111222
  Serious: No
  Sender: FDA-Public Use
  Company Number: US-AMGEN-USASP2011040450

PATIENT
  Age: 76 Year
  Sex: Male

DRUGS (14)
  1. LUPRON [Concomitant]
     Dosage: UNK
  2. CARTIA XT [Concomitant]
     Dosage: UNK
  3. OXYCODONE HCL [Concomitant]
     Dosage: UNK
  4. LORAZEPAM [Concomitant]
     Dosage: UNK
  5. ASMANEX TWISTHALER [Concomitant]
     Dosage: UNK
  6. IMDUR [Concomitant]
     Dosage: UNK
  7. CYMBALTA [Concomitant]
     Dosage: UNK
  8. COMPAZINE [Concomitant]
     Dosage: UNK
  9. MORPHINE SULFATE [Concomitant]
     Dosage: 1 MG, UNK
  10. ALBUTEROL [Concomitant]
     Dosage: UNK
  11. GLIPIZIDE [Concomitant]
     Dosage: UNK
  12. XGEVA [Suspect]
     Indication: METASTASES TO BONE
     Dosage: 120 MG, Q4WK
     Dates: start: 20110803
  13. NEXIUM [Concomitant]
     Dosage: UNK
  14. CARBIDOPA AND LEVODOPA [Concomitant]
     Dosage: UNK

REACTIONS (1)
  - FATIGUE [None]
